FAERS Safety Report 9278211 (Version 2)
Quarter: 2019Q2

REPORT INFORMATION
  Report Type: Spontaneous
  Country: CA (occurrence: CA)
  Receive Date: 20130508
  Receipt Date: 20190618
  Transmission Date: 20190711
  Serious: Yes (Death, Hospitalization, Other)
  Sender: FDA-Public Use
  Company Number: CA-PFIZER INC-2013138283

PATIENT
  Age: 52 Year
  Sex: Male
  Weight: 137 kg

DRUGS (5)
  1. APO-METOCLOP [Suspect]
     Active Substance: METOCLOPRAMIDE HYDROCHLORIDE
     Indication: ABDOMINAL DISCOMFORT
     Dosage: 5 MG, UNK
     Route: 042
     Dates: start: 201302
  2. WARFARIN [Suspect]
     Active Substance: WARFARIN
     Indication: BLOOD DISORDER
     Dosage: UNK
     Dates: start: 2013
  3. NORVASC [Suspect]
     Active Substance: AMLODIPINE BESYLATE
     Indication: HYPERTENSION
     Dosage: 10 MG, 2X/DAY
     Dates: start: 201301
  4. APO-METOCLOP [Suspect]
     Active Substance: METOCLOPRAMIDE HYDROCHLORIDE
     Indication: NAUSEA
  5. NITROGLYCERIN. [Concomitant]
     Active Substance: NITROGLYCERIN
     Dosage: UNK
     Route: 062

REACTIONS (7)
  - Renal failure [Fatal]
  - Thrombosis [Unknown]
  - Asthenia [Unknown]
  - Dizziness [Unknown]
  - International normalised ratio increased [Unknown]
  - Hypotension [Unknown]
  - Off label use [Unknown]

NARRATIVE: CASE EVENT DATE: 2013
